FAERS Safety Report 4314341-X (Version None)
Quarter: 2004Q1

REPORT INFORMATION
  Report Type: 
  Country: None (occurrence: None)
  Receive Date: 20040308
  Receipt Date: 20040126
  Transmission Date: 20041129
  Serious: Yes (Death, Other)
  Sender: FDA-Public Use
  Company Number: USA-2003-0010572

PATIENT
  Age: 41 Year
  Sex: Female
  Weight: 76.6 kg

DRUGS (6)
  1. OXYCODONE HYDROCHLORIDE(OXYCODONE HYDROCHLORIDE) CR TABLET [Suspect]
     Indication: PAIN
     Dosage: SEE IMAGE
     Route: 048
     Dates: start: 20020101, end: 20030201
  2. OXYIR CAPSULES 5MG (OXYCODONE HYDROCHLORIDE)IR CAPSULE [Suspect]
     Indication: PAIN
     Dosage: 5 MG, ORAL
     Route: 048
  3. OXYCODONE HCL [Suspect]
     Indication: PAIN
     Dosage: 5 MG
  4. NITRO ^SOLVAY^ (GLYCERYL TRINITRATE) [Concomitant]
  5. SOMA [Concomitant]
  6. RESTORIL [Concomitant]

REACTIONS (15)
  - ACUTE MYOCARDIAL INFARCTION [None]
  - ANXIETY [None]
  - CHEST PAIN [None]
  - CORONARY ARTERY DISEASE [None]
  - CORONARY ARTERY OCCLUSION [None]
  - CORONARY ARTERY STENOSIS [None]
  - DISEASE PROGRESSION [None]
  - DRUG ABUSER [None]
  - DRUG DEPENDENCE [None]
  - DYSPNOEA [None]
  - EMOTIONAL DISTRESS [None]
  - MITRAL VALVE INCOMPETENCE [None]
  - OFF LABEL USE [None]
  - PAIN [None]
  - VENTRICULAR HYPOKINESIA [None]
